FAERS Safety Report 13241508 (Version 1)
Quarter: 2017Q1

REPORT INFORMATION
  Report Type: Spontaneous
  Country: US (occurrence: US)
  Receive Date: 20170216
  Receipt Date: 20170216
  Transmission Date: 20170428
  Serious: No
  Sender: FDA-Public Use
  Company Number: None

PATIENT
  Age: 78 Year
  Sex: Male

DRUGS (1)
  1. NINLARO [Suspect]
     Active Substance: IXAZOMIB
     Indication: PLASMA CELL MYELOMA
     Dates: start: 20160825

REACTIONS (5)
  - Diarrhoea [None]
  - Constipation [None]
  - Neutropenia [None]
  - Thrombocytopenia [None]
  - Weight increased [None]

NARRATIVE: CASE EVENT DATE: 20160825
